FAERS Safety Report 25056327 (Version 7)
Quarter: 2025Q3

REPORT INFORMATION
  Report Type: Report from Study
  Country: US (occurrence: US)
  Receive Date: 20250310
  Receipt Date: 20250827
  Transmission Date: 20251021
  Serious: Yes (Hospitalization, Other)
  Sender: ABBVIE
  Company Number: US-ABBVIE-6162502

PATIENT
  Age: 54 Year
  Sex: Female
  Weight: 61 kg

DRUGS (11)
  1. HUMIRA [Suspect]
     Active Substance: ADALIMUMAB
     Indication: Crohn^s disease
     Route: 058
     Dates: end: 202502
  2. RINVOQ [Suspect]
     Active Substance: UPADACITINIB
     Indication: Crohn^s disease
     Dosage: FORM STRENGTH :30 MILLIGRAM
     Route: 048
  3. RINVOQ [Suspect]
     Active Substance: UPADACITINIB
     Indication: Crohn^s disease
     Dosage: FORM STRENGTH :45 MILLIGRAM. LAST ADMIN DATE- 2024
     Route: 048
     Dates: start: 20240904
  4. RINVOQ [Suspect]
     Active Substance: UPADACITINIB
     Indication: Crohn^s disease
     Route: 048
     Dates: start: 20240916, end: 202502
  5. FOSAMAX [Concomitant]
     Active Substance: ALENDRONATE SODIUM
     Indication: Osteoporosis
  6. IMODIUM [Concomitant]
     Active Substance: LOPERAMIDE HYDROCHLORIDE
     Indication: Diarrhoea
  7. ADDERALL [Concomitant]
     Active Substance: AMPHETAMINE ASPARTATE\AMPHETAMINE SULFATE\DEXTROAMPHETAMINE SACCHARATE\DEXTROAMPHETAMINE SULFATE
     Indication: Disturbance in attention
  8. ESTROGENS [Concomitant]
     Active Substance: ESTROGENS
     Indication: Osteoporosis
  9. KLONOPIN [Concomitant]
     Active Substance: CLONAZEPAM
     Indication: Anxiety
  10. VITAMIN D3 [Concomitant]
     Active Substance: CHOLECALCIFEROL
     Indication: Product used for unknown indication
  11. PAXIL [Concomitant]
     Active Substance: PAROXETINE HYDROCHLORIDE
     Indication: Hot flush

REACTIONS (32)
  - Osteoarthritis [Recovering/Resolving]
  - Pain in extremity [Recovering/Resolving]
  - Aphthous ulcer [Recovering/Resolving]
  - Diarrhoea [Unknown]
  - Nodule [Not Recovered/Not Resolved]
  - Oropharyngeal pain [Recovered/Resolved]
  - Contusion [Not Recovered/Not Resolved]
  - Oral candidiasis [Not Recovered/Not Resolved]
  - Rheumatoid arthritis [Not Recovered/Not Resolved]
  - Neoplasm malignant [Unknown]
  - Vitamin C deficiency [Unknown]
  - Skin laceration [Unknown]
  - Thrombosis [Unknown]
  - Neck pain [Not Recovered/Not Resolved]
  - Cerebrovascular accident [Unknown]
  - Skin cancer [Unknown]
  - Lower limb fracture [Unknown]
  - Neoplasm malignant [Unknown]
  - Oesophageal dilation procedure [Unknown]
  - Urinary incontinence [Unknown]
  - COVID-19 [Unknown]
  - Epicondylitis [Unknown]
  - Hypoaesthesia [Unknown]
  - Crohn^s disease [Unknown]
  - Illness [Unknown]
  - Haemorrhage [Not Recovered/Not Resolved]
  - Red blood cell count decreased [Unknown]
  - Platelet count increased [Unknown]
  - Intestinal resection [Unknown]
  - Urinary incontinence [Unknown]
  - Sinusitis [Unknown]
  - Lower limb fracture [Unknown]

NARRATIVE: CASE EVENT DATE: 20210201
